FAERS Safety Report 8483520-2 (Version None)
Quarter: 2012Q3

REPORT INFORMATION
  Report Type: 
  Country: None (occurrence: None)
  Receive Date: 20120702
  Receipt Date: 20120629
  Transmission Date: 20120928
  Serious: Yes (Other)
  Sender: FDA-Public Use
  Company Number: US-MERCK-1206USA04053

PATIENT
  Age: 64 Year
  Sex: Female
  Weight: 49 kg

DRUGS (3)
  1. VYTORIN [Suspect]
     Route: 048
     Dates: start: 20050101, end: 20110930
  2. TENORMIN [Concomitant]
     Indication: HYPERTENSION
     Route: 048
  3. MULTIVITAMIN [Suspect]
     Route: 048

REACTIONS (3)
  - BLOOD CHOLESTEROL INCREASED [None]
  - THROAT IRRITATION [None]
  - CHOKING [None]
